FAERS Safety Report 25079292 (Version 1)
Quarter: 2025Q1

REPORT INFORMATION
  Report Type: Spontaneous
  Country: US (occurrence: US)
  Receive Date: 20250314
  Receipt Date: 20250314
  Transmission Date: 20250409
  Serious: No
  Sender: MERCK SHARP & DOHME LLC
  Company Number: US-PFIZER INC-202500033979

PATIENT
  Age: 70 Year
  Sex: Female

DRUGS (6)
  1. ONDANSETRON [Suspect]
     Active Substance: ONDANSETRON
     Dosage: 300MG 2X/DAY (TAKE TWO 150 MG TABLETS TWICE DAILY), ORAL
     Route: 048
  2. DULOXETINE [Concomitant]
     Active Substance: DULOXETINE
  3. CAPECITABINE [Concomitant]
     Active Substance: CAPECITABINE
  4. ESOMEPRAZOLE [Concomitant]
     Active Substance: ESOMEPRAZOLE
  5. GABAPENTIN [Concomitant]
     Active Substance: GABAPENTIN
  6. FUROSEMIDE [Concomitant]
     Active Substance: FUROSEMIDE

REACTIONS (2)
  - Off label use [Unknown]
  - Product use issue [Unknown]
